FAERS Safety Report 24594927 (Version 1)
Quarter: 2024Q4

REPORT INFORMATION
  Report Type: Spontaneous
  Country: KH (occurrence: KH)
  Receive Date: 20241108
  Receipt Date: 20241108
  Transmission Date: 20250115
  Serious: Yes (Other)
  Sender: GUERBET
  Company Number: KH-GUERBETG-KH-20240001

PATIENT
  Age: 62 Year
  Sex: Male

DRUGS (5)
  1. LIPIODOL [Suspect]
     Active Substance: ETHIODIZED OIL
     Indication: Transcatheter arterial chemoembolisation
     Dosage: A MIXTURE OF DOXORUBICIN 6ML/20MG AND ETHANOL-LIPIODOL 2ML/4ML.
     Route: 013
  2. LIPIODOL [Suspect]
     Active Substance: ETHIODIZED OIL
     Indication: Therapeutic embolisation
     Dosage: ONE FOURTH OF HISTOACRYL-LIPIODOL.
     Route: 013
  3. DOXORUBICIN [Suspect]
     Active Substance: DOXORUBICIN
     Indication: Transcatheter arterial chemoembolisation
     Dosage: A MIXTURE OF DOXORUBICIN 6ML/20MG AND ETHANOL-LIPIODOL 2ML/4ML.
     Route: 013
  4. ALCOHOL [Suspect]
     Active Substance: ALCOHOL
     Indication: Transcatheter arterial chemoembolisation
     Dosage: A MIXTURE OF DOXORUBICIN 6ML/20MG AND ETHANOL-LIPIODOL 2ML/4ML.
     Route: 013
  5. HISTOACRYL [Suspect]
     Active Substance: ENBUCRILATE
     Indication: Therapeutic embolisation
     Dosage: ONE FOURTH OF HISTOACRYL-LIPIODOL.
     Route: 013

REACTIONS (2)
  - Biliary-vascular fistula [Recovered/Resolved]
  - Product use issue [Recovered/Resolved]
